FAERS Safety Report 5179647-3 (Version None)
Quarter: 2006Q4

REPORT INFORMATION
  Report Type: 
  Country: None (occurrence: None)
  Receive Date: 20061211
  Receipt Date: 20061128
  Transmission Date: 20070319
  Serious: Yes (Other)
  Sender: FDA-Public Use
  Company Number: 2006MP001225

PATIENT
  Age: 71 Year
  Sex: Male

DRUGS (6)
  1. DACOGEN [Suspect]
     Indication: MYELODYSPLASTIC SYNDROME
     Dosage: 20 MG/M**2; Q28D; IV
     Route: 042
     Dates: start: 20051121, end: 20060929
  2. GLUCOPHAGE [Concomitant]
  3. LASIX [Concomitant]
  4. LOTENSIN [Concomitant]
  5. MICRONASE [Concomitant]
  6. TOPROL-XL [Concomitant]

REACTIONS (1)
  - MYELOFIBROSIS [None]
